FAERS Safety Report 6616056-1 (Version None)
Quarter: 2010Q1

REPORT INFORMATION
  Report Type: 
  Country: None (occurrence: None)
  Receive Date: 20100305
  Receipt Date: 20100223
  Transmission Date: 20100710
  Serious: Yes (Other)
  Sender: FDA-Public Use
  Company Number: CH-GILEAD-2010-0027303

PATIENT
  Age: 62 Year
  Sex: Female

DRUGS (6)
  1. VIREAD [Suspect]
     Indication: HIV INFECTION
     Dates: start: 20060701, end: 20070801
  2. DIDANOSINE [Concomitant]
     Indication: HIV INFECTION
     Dates: end: 20060701
  3. STAVUDINE [Concomitant]
     Indication: HIV INFECTION
  4. NELFINAVIR MESYLATE [Concomitant]
     Indication: HIV INFECTION
  5. ABACAVIR [Concomitant]
     Indication: HIV INFECTION
     Dates: start: 20050101
  6. LOPINAVIR AND RITONAVIR [Concomitant]
     Dates: start: 20050101

REACTIONS (6)
  - BONE PAIN [None]
  - FANCONI SYNDROME ACQUIRED [None]
  - MULTIPLE FRACTURES [None]
  - NEPHROPATHY TOXIC [None]
  - OSTEOMALACIA [None]
  - SYNOVIAL DISORDER [None]
